FAERS Safety Report 6432671-2 (Version None)
Quarter: 2009Q4

REPORT INFORMATION
  Report Type: 
  Country: None (occurrence: None)
  Receive Date: 20091109
  Receipt Date: 20091030
  Transmission Date: 20100525
  Serious: Yes (Hospitalization)
  Sender: FDA-Public Use
  Company Number: GXKR2009GB11993

PATIENT
  Sex: Female

DRUGS (8)
  1. MIRTAZAPINE [Suspect]
     Route: 065
  2. RISPERDAL [Interacting]
     Indication: DEPRESSION
     Dosage: 500 UG, QD
     Route: 048
  3. ACETYLSALICYLIC ACID [Concomitant]
     Route: 065
  4. FOLIC ACID [Concomitant]
     Route: 065
  5. IBUPROFEN [Concomitant]
     Route: 065
  6. NULYTELY [Concomitant]
     Route: 065
  7. PARACETAMOL [Concomitant]
     Route: 065
  8. SIMVASTATIN [Concomitant]
     Route: 065

REACTIONS (2)
  - DRUG INTERACTION [None]
  - ILEUS [None]
